FAERS Safety Report 24349844 (Version 1)
Quarter: 2024Q3

REPORT INFORMATION
  Report Type: Spontaneous
  Country: US (occurrence: None)
  Receive Date: 20240920
  Receipt Date: 20240920
  Transmission Date: 20241016
  Serious: Yes (Hospitalization)
  Sender: Public
  Company Number: None

PATIENT
  Age: 63 Year
  Sex: Female

DRUGS (1)
  1. CUTAQUIG [Suspect]
     Active Substance: HUMAN IMMUNOGLOBULIN G
     Indication: Immunodeficiency common variable
     Dosage: 12GM EVERY WEEK SUBCUTANEOUSLY
     Route: 058
     Dates: start: 202211

REACTIONS (2)
  - Intestinal obstruction [None]
  - Decreased appetite [None]

NARRATIVE: CASE EVENT DATE: 20240904
